FAERS Safety Report 11357214 (Version 1)
Quarter: 2015Q3

REPORT INFORMATION
  Report Type: Spontaneous
  Country: US (occurrence: US)
  Receive Date: 20150803
  Receipt Date: 20150803
  Transmission Date: 20151125
  Serious: No
  Sender: FDA-Public Use
  Company Number: US-ELI_LILLY_AND_COMPANY-US200512004456

PATIENT
  Sex: Male
  Weight: 100 kg

DRUGS (4)
  1. ZYPREXA [Suspect]
     Active Substance: OLANZAPINE
     Indication: BIPOLAR DISORDER
     Dosage: 10 MG, QD
  2. ZYPREXA [Suspect]
     Active Substance: OLANZAPINE
     Dosage: 2.5 MG, UNK
  3. ZYPREXA [Suspect]
     Active Substance: OLANZAPINE
     Indication: BIPOLAR DISORDER
     Dosage: 7.5 MG, DAILY (1/D)
     Dates: start: 2003
  4. LITHIUM. [Concomitant]
     Active Substance: LITHIUM
     Indication: BIPOLAR I DISORDER

REACTIONS (15)
  - Somnolence [Unknown]
  - Fatigue [Not Recovered/Not Resolved]
  - Crying [Recovered/Resolved]
  - Off label use [Unknown]
  - Mood swings [Not Recovered/Not Resolved]
  - Thinking abnormal [Recovered/Resolved]
  - Aggression [Not Recovered/Not Resolved]
  - Depression [Recovered/Resolved]
  - Aggression [Unknown]
  - Fatigue [Unknown]
  - Pollakiuria [Not Recovered/Not Resolved]
  - Yawning [Unknown]
  - Drug ineffective [Recovered/Resolved]
  - Impulsive behaviour [Recovered/Resolved]
  - Malaise [Recovered/Resolved]

NARRATIVE: CASE EVENT DATE: 2005
